FAERS Safety Report 16848496 (Version 2)
Quarter: 2019Q4

REPORT INFORMATION
  Report Type: Spontaneous
  Country: JP (occurrence: JP)
  Receive Date: 20190925
  Receipt Date: 20191121
  Transmission Date: 20200122
  Serious: Yes (Hospitalization, Other)
  Sender: FDA-Public Use
  Company Number: JP-ROCHE-2414601

PATIENT
  Age: 60 Year
  Sex: Male

DRUGS (10)
  1. ESOMEPRAZOLE. [Concomitant]
     Active Substance: ESOMEPRAZOLE MAGNESIUM
     Indication: B-CELL LYMPHOMA
     Route: 048
  2. OBINUTUZUMAB. [Concomitant]
     Active Substance: OBINUTUZUMAB
     Indication: B-CELL LYMPHOMA
     Route: 065
     Dates: start: 20181221
  3. DAIPHEN [Concomitant]
     Active Substance: SULFAMETHOXAZOLE\TRIMETHOPRIM
     Indication: B-CELL LYMPHOMA
     Route: 048
     Dates: start: 20181220, end: 20190514
  4. FEBUXOSTAT. [Concomitant]
     Active Substance: FEBUXOSTAT
     Indication: B-CELL LYMPHOMA
     Route: 048
     Dates: start: 20181220, end: 20190611
  5. RITUXAN [Suspect]
     Active Substance: RITUXIMAB
     Indication: B-CELL LYMPHOMA
     Route: 041
     Dates: start: 20170124, end: 20170628
  6. ASPIRIN [ACETYLSALICYLIC ACID] [Concomitant]
     Active Substance: ASPIRIN
     Indication: B-CELL LYMPHOMA
     Route: 048
     Dates: start: 20170119
  7. BENDAMUSTINE HYDROCHLORIDE. [Concomitant]
     Active Substance: BENDAMUSTINE HYDROCHLORIDE
     Indication: B-CELL LYMPHOMA
     Route: 065
     Dates: start: 20181222
  8. ACICLOVIR [Concomitant]
     Active Substance: ACYCLOVIR
     Indication: B-CELL LYMPHOMA
     Route: 048
     Dates: start: 20181220
  9. FLUCONAZOLE. [Concomitant]
     Active Substance: FLUCONAZOLE
     Indication: B-CELL LYMPHOMA
     Route: 048
     Dates: start: 20181220
  10. EMEND [Concomitant]
     Active Substance: APREPITANT
     Indication: B-CELL LYMPHOMA
     Route: 048
     Dates: start: 20181222, end: 20190516

REACTIONS (3)
  - Lymphocyte count decreased [Unknown]
  - Cytomegalovirus chorioretinitis [Recovered/Resolved with Sequelae]
  - Cytomegalovirus viraemia [Recovered/Resolved]

NARRATIVE: CASE EVENT DATE: 20190813
